FAERS Safety Report 20659055 (Version 1)
Quarter: 2022Q1

REPORT INFORMATION
  Report Type: Spontaneous
  Country: SA (occurrence: SA)
  Receive Date: 20220331
  Receipt Date: 20220331
  Transmission Date: 20220423
  Serious: Yes (Other)
  Sender: FDA-Public Use
  Company Number: SA-LUPIN PHARMACEUTICALS INC.-2022-04640

PATIENT
  Age: 38 Year
  Sex: Male

DRUGS (1)
  1. TADALAFIL [Suspect]
     Active Substance: TADALAFIL
     Indication: Male sexual dysfunction
     Dosage: HE HAD BEEN INGESTING A SPECIAL TYPE OF HONEY TO IMPROVE SEXUAL FUNCTION. IT WAS NOTICED THAT THE HO
     Route: 048

REACTIONS (2)
  - Chorioretinopathy [Recovered/Resolved]
  - Intentional product misuse [Recovered/Resolved]
